FAERS Safety Report 25978464 (Version 1)
Quarter: 2025Q4

REPORT INFORMATION
  Report Type: Spontaneous
  Country: US (occurrence: US)
  Receive Date: 20251030
  Receipt Date: 20251030
  Transmission Date: 20260117
  Serious: Yes (Hospitalization)
  Sender: LEXICON PHARMACEUTICALS
  Company Number: US-LEX-000645

PATIENT
  Age: 88 Year
  Sex: Male

DRUGS (7)
  1. INPEFA [Suspect]
     Active Substance: SOTAGLIFLOZIN
     Indication: Atrial fibrillation
     Route: 048
     Dates: start: 20241029, end: 20241223
  2. INPEFA [Suspect]
     Active Substance: SOTAGLIFLOZIN
     Indication: Atrial fibrillation
     Route: 048
  3. ELIQUIS [Concomitant]
     Active Substance: APIXABAN
     Indication: Product used for unknown indication
     Dosage: STRENGTH: 2.5 MG
  4. DIGOXIN [Concomitant]
     Active Substance: DIGOXIN
     Indication: Product used for unknown indication
     Dosage: STRENGTH: 0.125 MG
  5. LOSARTAN [Concomitant]
     Active Substance: LOSARTAN
     Indication: Product used for unknown indication
     Dosage: STRENGTH: 50 MG
  6. AMIODARONE [Concomitant]
     Active Substance: AMIODARONE
     Indication: Product used for unknown indication
     Dosage: STRENGTH: 200 MG
  7. METOPROLOL [Concomitant]
     Active Substance: METOPROLOL
     Indication: Product used for unknown indication
     Dosage: STRENGTH: 25 MG

REACTIONS (5)
  - Pneumonia [Unknown]
  - Off label use [Unknown]
  - Therapy interrupted [Unknown]
  - Product use issue [Unknown]
  - Dehydration [Unknown]

NARRATIVE: CASE EVENT DATE: 20241029
